FAERS Safety Report 5425083-1 (Version None)
Quarter: 2007Q3

REPORT INFORMATION
  Report Type: 
  Country: None (occurrence: None)
  Receive Date: 20070824
  Receipt Date: 20070815
  Transmission Date: 20080115
  Serious: Yes (Other)
  Sender: FDA-Public Use
  Company Number: GB-ASTRAZENECA-2007GB01690

PATIENT
  Sex: Female

DRUGS (2)
  1. DIPRIVAN [Suspect]
     Indication: ASTHMA
     Route: 042
     Dates: start: 20070801
  2. SIMVASTATIN [Suspect]

REACTIONS (1)
  - RHABDOMYOLYSIS [None]
